FAERS Safety Report 24611764 (Version 1)
Quarter: 2024Q4

REPORT INFORMATION
  Report Type: Spontaneous
  Country: ES (occurrence: ES)
  Receive Date: 20241113
  Receipt Date: 20241113
  Transmission Date: 20250114
  Serious: Yes (Hospitalization)
  Sender: SAMSUNG BIOEPIS
  Company Number: None

PATIENT
  Age: 74 Year
  Sex: Female
  Weight: 50 kg

DRUGS (3)
  1. ETANERCEPT [Suspect]
     Active Substance: ETANERCEPT
     Indication: Product used for unknown indication
     Dosage: UNA INYECC?ON CADA 14 D?AS
     Route: 058
     Dates: start: 2003
  2. METOTREXATO SEMANAL CIPLA 2,5 mg COMPRIMIDOS EFG , 24 comprimidos [Concomitant]
     Indication: Rheumatoid arthritis
     Dosage: 4 PASTILLAS A LA SEMANA
  3. ARCOXIA [Concomitant]
     Active Substance: ETORICOXIB
     Dates: start: 2010

REACTIONS (2)
  - Atrial flutter [Unknown]
  - Off label use [Unknown]

NARRATIVE: CASE EVENT DATE: 20240612
